FAERS Safety Report 13299331 (Version 3)
Quarter: 2017Q3

REPORT INFORMATION
  Report Type: Report from Study
  Country: US (occurrence: US)
  Receive Date: 20170306
  Receipt Date: 20170801
  Transmission Date: 20171127
  Serious: Yes (Hospitalization, Other)
  Sender: FDA-Public Use
  Company Number: US-JNJFOC-20170305210

PATIENT
  Age: 74 Year
  Sex: Male

DRUGS (21)
  1. ZOVIRAX [Concomitant]
     Active Substance: ACYCLOVIR
  2. LASIX [Concomitant]
     Active Substance: FUROSEMIDE
  3. IMBRUVICA [Suspect]
     Active Substance: IBRUTINIB
     Indication: CHRONIC LYMPHOCYTIC LEUKAEMIA
     Dosage: 420 MG, QD
     Route: 048
  4. IMBRUVICA [Suspect]
     Active Substance: IBRUTINIB
     Indication: CHRONIC LYMPHOCYTIC LEUKAEMIA
     Dosage: 420 MG, QD
     Route: 048
     Dates: start: 20161225, end: 2017
  5. ASPIRIN. [Concomitant]
     Active Substance: ASPIRIN
  6. MULTI VITAMIN [Concomitant]
     Active Substance: VITAMINS
  7. FISH OIL W/TOCOPHEROL [Concomitant]
  8. AMARYL [Concomitant]
     Active Substance: GLIMEPIRIDE
  9. IMBRUVICA [Suspect]
     Active Substance: IBRUTINIB
     Indication: CHRONIC LYMPHOCYTIC LEUKAEMIA
     Route: 048
     Dates: start: 20161222
  10. ZYLOPRIM [Concomitant]
     Active Substance: ALLOPURINOL
  11. METFORMIN [Concomitant]
     Active Substance: METFORMIN HYDROCHLORIDE
  12. PERFOROMIST [Concomitant]
     Active Substance: FORMOTEROL FUMARATE DIHYDRATE
  13. ADVIL [Concomitant]
     Active Substance: IBUPROFEN
  14. ATENOLOL. [Concomitant]
     Active Substance: ATENOLOL
  15. TYLENOL [Concomitant]
     Active Substance: ACETAMINOPHEN
  16. ASCORBIC ACID. [Concomitant]
     Active Substance: ASCORBIC ACID
  17. ENALAPRIL [Concomitant]
     Active Substance: ENALAPRIL
  18. IMBRUVICA [Suspect]
     Active Substance: IBRUTINIB
     Indication: CHRONIC LYMPHOCYTIC LEUKAEMIA
     Dosage: 420 MG, QD
     Route: 048
     Dates: start: 20161226, end: 201703
  19. SYNTHROID [Concomitant]
     Active Substance: LEVOTHYROXINE SODIUM
  20. BUDESONIDE. [Concomitant]
     Active Substance: BUDESONIDE
  21. ALDACTONE [Concomitant]
     Active Substance: SPIRONOLACTONE

REACTIONS (11)
  - Blood count abnormal [Unknown]
  - Diarrhoea [Unknown]
  - Lower respiratory tract infection bacterial [Unknown]
  - Hernia [Unknown]
  - Blood glucose decreased [Unknown]
  - Oedema peripheral [Not Recovered/Not Resolved]
  - Oedema [Unknown]
  - Hepatic cirrhosis [Unknown]
  - Pain [Unknown]
  - White blood cell count decreased [Unknown]
  - Ascites [Unknown]

NARRATIVE: CASE EVENT DATE: 20170227
